FAERS Safety Report 4581953-8 (Version None)
Quarter: 2005Q1

REPORT INFORMATION
  Report Type: 
  Country: None (occurrence: None)
  Receive Date: 20050127
  Receipt Date: 20040913
  Transmission Date: 20050727
  Serious: No
  Sender: FDA-Public Use
  Company Number: USA040978035

PATIENT
  Age: 9 Year
  Sex: Male
  Weight: 27 kg

DRUGS (1)
  1. STRATTERA [Suspect]
     Indication: ATTENTION DEFICIT/HYPERACTIVITY DISORDER
     Dosage: 25 MG/1 DAY
     Dates: start: 20030101

REACTIONS (7)
  - APPETITE DISORDER [None]
  - NAUSEA [None]
  - PERSONALITY CHANGE [None]
  - RETCHING [None]
  - SOMNOLENCE [None]
  - STOMACH DISCOMFORT [None]
  - VOMITING [None]
